FAERS Safety Report 12131473 (Version 1)
Quarter: 2016Q1

REPORT INFORMATION
  Report Type: Spontaneous
  Country: US (occurrence: None)
  Receive Date: 20160229
  Receipt Date: 20160229
  Transmission Date: 20160526
  Serious: Yes (Disabling)
  Sender: FDA-Public Use
  Company Number: None

PATIENT
  Age: 95 Year
  Sex: Female
  Weight: 90.72 kg

DRUGS (10)
  1. TYLENOL [Concomitant]
     Active Substance: ACETAMINOPHEN
  2. VITAMIN B12 [Concomitant]
     Active Substance: CYANOCOBALAMIN
  3. FUROCIMIDE [Concomitant]
  4. GABAPENTIN 100 MG CAMBER PHARMACEUTICALS [Suspect]
     Active Substance: GABAPENTIN
     Indication: PAIN
     Dosage: 2 THREE TIMES DAILY TAKEN BY MOUTH
     Route: 048
     Dates: start: 20160201, end: 20160225
  5. PRAVESTATIN [Concomitant]
  6. PRADAXA [Concomitant]
     Active Substance: DABIGATRAN ETEXILATE MESYLATE
  7. C [Concomitant]
  8. POTASSIUM [Concomitant]
     Active Substance: POTASSIUM
  9. OXYCODONE [Concomitant]
     Active Substance: OXYCODONE
  10. PRONTOPRAZOLIE [Concomitant]

REACTIONS (1)
  - Aphasia [None]

NARRATIVE: CASE EVENT DATE: 20160201
